FAERS Safety Report 21484557 (Version 2)
Quarter: 2022Q4

REPORT INFORMATION
  Report Type: Spontaneous
  Country: CN (occurrence: CN)
  Receive Date: 20221020
  Receipt Date: 20221201
  Transmission Date: 20230113
  Serious: Yes (Other)
  Sender: FDA-Public Use
  Company Number: CN-SANOFI-01321568

PATIENT
  Age: 74 Year
  Sex: Male

DRUGS (3)
  1. DUPIXENT [Suspect]
     Active Substance: DUPILUMAB
     Indication: Dermatitis atopic
     Dosage: ONCE EVERY TWO WEEKS
     Dates: start: 20210601
  2. DUPIXENT [Suspect]
     Active Substance: DUPILUMAB
     Dosage: ONCE EVERY FOUR WEEKS
  3. ELOSONE [ERYTHROMYCIN ESTOLATE] [Concomitant]

REACTIONS (2)
  - Peritoneal tuberculosis [Unknown]
  - Intentional product misuse [Unknown]

NARRATIVE: CASE EVENT DATE: 20220701
